FAERS Safety Report 4949233-6 (Version None)
Quarter: 2006Q1

REPORT INFORMATION
  Report Type: 
  Country: None (occurrence: None)
  Receive Date: 20060321
  Receipt Date: 20060309
  Transmission Date: 20060701
  Serious: Yes (Congenital Anomaly)
  Sender: FDA-Public Use
  Company Number: JP-SANOFI-SYNTHELABO-A01200601999

PATIENT
  Sex: Female
  Weight: 1.724 kg

DRUGS (2)
  1. MYSLEE [Suspect]
     Indication: DRUG DEPENDENCE
     Dosage: 100 TO 200 MG DAILY
     Route: 064
     Dates: start: 20050801, end: 20060210
  2. MYSLEE [Suspect]
     Route: 064
     Dates: start: 20060210, end: 20060221

REACTIONS (8)
  - BODY TEMPERATURE INCREASED [None]
  - CAESAREAN SECTION [None]
  - DRUG DEPENDENCE [None]
  - DRUG EXPOSURE DURING PREGNANCY [None]
  - HYPOTONIA NEONATAL [None]
  - PREMATURE BABY [None]
  - SUICIDE ATTEMPT [None]
  - TACHYPNOEA [None]
